FAERS Safety Report 20924944 (Version 1)
Quarter: 2022Q2

REPORT INFORMATION
  Report Type: Spontaneous
  Country: CN (occurrence: CN)
  Receive Date: 20220607
  Receipt Date: 20220607
  Transmission Date: 20220721
  Serious: Yes (Other)
  Sender: FDA-Public Use
  Company Number: CN-PFIZER INC-202200798221

PATIENT
  Age: 27 Year
  Sex: Female

DRUGS (2)
  1. HEMABATE [Suspect]
     Active Substance: CARBOPROST TROMETHAMINE
     Indication: Prophylaxis
     Dosage: 250 UG, 1X/DAY
     Route: 030
     Dates: start: 20220517, end: 20220517
  2. HEMABATE [Suspect]
     Active Substance: CARBOPROST TROMETHAMINE
     Indication: Postpartum haemorrhage

REACTIONS (6)
  - Palpitations [Recovering/Resolving]
  - Dyspnoea [Recovering/Resolving]
  - Headache [Recovering/Resolving]
  - Rash erythematous [Recovered/Resolved]
  - Blood pressure increased [Recovering/Resolving]
  - Oxygen saturation decreased [Recovering/Resolving]

NARRATIVE: CASE EVENT DATE: 20220517
